FAERS Safety Report 6979788-1 (Version None)
Quarter: 2010Q3

REPORT INFORMATION
  Report Type: 
  Country: None (occurrence: None)
  Receive Date: 20100914
  Receipt Date: 20100907
  Transmission Date: 20110219
  Serious: Yes (Hospitalization)
  Sender: FDA-Public Use
  Company Number: US-BIOGENIDEC-2010BI029936

PATIENT
  Age: 51 Year
  Sex: Male
  Weight: 81 kg

DRUGS (2)
  1. AVONEX [Suspect]
     Indication: MULTIPLE SCLEROSIS
     Route: 030
     Dates: start: 20051101, end: 20100501
  2. AVONEX [Suspect]
     Route: 030
     Dates: start: 20100601

REACTIONS (8)
  - BLOOD COUNT ABNORMAL [None]
  - BRONCHIOLOALVEOLAR CARCINOMA [None]
  - CHILLS [None]
  - HANGOVER [None]
  - INFECTION SUSCEPTIBILITY INCREASED [None]
  - LOWER RESPIRATORY TRACT INFECTION [None]
  - OEDEMA PERIPHERAL [None]
  - RHABDOMYOLYSIS [None]
